FAERS Safety Report 4914636-2 (Version None)
Quarter: 2006Q1

REPORT INFORMATION
  Report Type: 
  Country: None (occurrence: None)
  Receive Date: 20060216
  Receipt Date: 20060106
  Transmission Date: 20060701
  Serious: Yes (Other)
  Sender: FDA-Public Use
  Company Number: US-MERCK-0601USA00689

PATIENT
  Age: 46 Year
  Sex: Female
  Weight: 70 kg

DRUGS (6)
  1. SINGULAIR [Suspect]
     Indication: ASTHMA
     Route: 048
     Dates: start: 20050404, end: 20060110
  2. SINGULAIR [Suspect]
     Indication: HYPERSENSITIVITY
     Route: 048
     Dates: start: 20050404, end: 20060110
  3. ZYRTEC [Concomitant]
     Route: 065
  4. ALLEGRA [Concomitant]
     Indication: HYPERSENSITIVITY
     Route: 048
  5. ADVAIR DISKUS 100/50 [Concomitant]
     Indication: ASTHMA
     Route: 055
  6. LEVORA 0.15/30-21 [Concomitant]
     Indication: ORAL CONTRACEPTION
     Route: 048

REACTIONS (10)
  - DYSPHAGIA [None]
  - DYSPNOEA [None]
  - GAMMA-GLUTAMYLTRANSFERASE INCREASED [None]
  - INSOMNIA [None]
  - PARAESTHESIA [None]
  - PHARYNGEAL OEDEMA [None]
  - PROTHROMBIN LEVEL ABNORMAL [None]
  - PRURITUS [None]
  - THROAT TIGHTNESS [None]
  - URTICARIA [None]
